FAERS Safety Report 4684866-6 (Version None)
Quarter: 2005Q2

REPORT INFORMATION
  Report Type: 
  Country: None (occurrence: None)
  Receive Date: 20050527
  Receipt Date: 20050310
  Transmission Date: 20051028
  Serious: No
  Sender: FDA-Public Use
  Company Number: PHEH2005US03000

PATIENT
  Age: 32 Year
  Sex: Female

DRUGS (2)
  1. ZELNORM [Suspect]
     Dosage: 6 MG, BID
     Dates: start: 20050305
  2. PARENTERAL NUTRITION (PARENTERAL NUTRITION) [Concomitant]

REACTIONS (2)
  - ABNORMAL FAECES [None]
  - DEHYDRATION [None]
